FAERS Safety Report 7109616-5 (Version None)
Quarter: 2010Q4

REPORT INFORMATION
  Report Type: 
  Country: None (occurrence: None)
  Receive Date: 20101118
  Receipt Date: 20100203
  Transmission Date: 20110411
  Serious: No
  Sender: FDA-Public Use
  Company Number: 2010BI003965

PATIENT
  Sex: Female

DRUGS (1)
  1. TYSABRI [Suspect]
     Indication: MULTIPLE SCLEROSIS
     Route: 042
     Dates: start: 20080411, end: 20091218

REACTIONS (17)
  - BALANCE DISORDER [None]
  - CONTUSION [None]
  - DEPRESSION [None]
  - FALL [None]
  - FATIGUE [None]
  - HYPOAESTHESIA FACIAL [None]
  - INJECTION SITE HAEMATOMA [None]
  - INSOMNIA [None]
  - LOSS OF CONSCIOUSNESS [None]
  - MIGRAINE [None]
  - MULTIPLE SCLEROSIS [None]
  - MUSCULAR WEAKNESS [None]
  - PAIN [None]
  - PAIN IN EXTREMITY [None]
  - PARAESTHESIA [None]
  - PRURITUS [None]
  - RASH [None]
